FAERS Safety Report 11614028 (Version 1)
Quarter: 2015Q4

REPORT INFORMATION
  Report Type: Spontaneous
  Country: FR (occurrence: FR)
  Receive Date: 20151008
  Receipt Date: 20151008
  Transmission Date: 20160304
  Serious: Yes (Hospitalization)
  Sender: FDA-Public Use
  Company Number: FR-BIOMARINAP-FR-2015-107541

PATIENT
  Age: 15 Year
  Sex: Female

DRUGS (3)
  1. CELESTENE                          /00008501/ [Concomitant]
     Active Substance: BETAMETHASONE
     Indication: PREMEDICATION
     Dosage: UNK
     Dates: start: 20140811
  2. ACETAMINOPHEN. [Concomitant]
     Active Substance: ACETAMINOPHEN
     Indication: PREMEDICATION
     Dosage: UNK
     Dates: start: 20140811
  3. VIMIZIM [Suspect]
     Active Substance: ELOSULFASE ALFA
     Indication: MUCOPOLYSACCHARIDOSIS IV
     Dosage: 45 MG, QW
     Route: 042
     Dates: start: 2012

REACTIONS (7)
  - Abdominal pain lower [Recovering/Resolving]
  - Pelvic pain [Recovering/Resolving]
  - Hypotension [Recovering/Resolving]
  - Tachycardia [Recovering/Resolving]
  - Cyanosis [Recovering/Resolving]
  - Nausea [Recovering/Resolving]
  - Hyperhidrosis [Recovering/Resolving]

NARRATIVE: CASE EVENT DATE: 20150615
